FAERS Safety Report 12954749 (Version 2)
Quarter: 2017Q1

REPORT INFORMATION
  Report Type: Spontaneous
  Country: US (occurrence: US)
  Receive Date: 20161118
  Receipt Date: 20170118
  Transmission Date: 20170428
  Serious: No
  Sender: FDA-Public Use
  Company Number: US-009507513-1611USA008073

PATIENT
  Age: 77 Year
  Sex: Female
  Weight: 73.46 kg

DRUGS (8)
  1. PRINIVIL [Concomitant]
     Active Substance: LISINOPRIL
     Indication: HYPERTENSION
     Dosage: 10 MG (1 TABLET) DAILY,90 DAYS, REFILLS: 3
     Route: 048
  2. ZOLOFT [Concomitant]
     Active Substance: SERTRALINE HYDROCHLORIDE
     Indication: DEPRESSION
     Dosage: 100 MG, EVERY MORNING
  3. VERAPAMIL [Concomitant]
     Active Substance: VERAPAMIL HYDROCHLORIDE
     Indication: BLOOD PRESSURE MEASUREMENT
     Dosage: 2 TABLETS DAILY
  4. SUTENT [Suspect]
     Active Substance: SUNITINIB MALATE
     Indication: RENAL CELL CARCINOMA
     Dosage: 50 MG, QD, THREE WEEK ON AND ONE WEEK OFF
     Dates: start: 20160929
  5. TRIMETHOPRIM. [Concomitant]
     Active Substance: TRIMETHOPRIM
     Dosage: 100 MG, QD
  6. AMBIEN [Concomitant]
     Active Substance: ZOLPIDEM TARTRATE
     Indication: SLEEP DISORDER
     Dosage: 10 MG (1 TABLET) AT BEDTIME AS NEEDED,30 DAYS
     Route: 048
  7. DEXAMETHASONE. [Suspect]
     Active Substance: DEXAMETHASONE
     Dosage: 5 ML SWISH FOR 2 MINS AND SPIT FOUR TIMES A DAY, 30 DAY(S) ,600 ML, REFILL: 2
     Route: 048
     Dates: start: 201610
  8. SUTENT [Suspect]
     Active Substance: SUNITINIB MALATE
     Dosage: 37.5 MG, 28 DAY SUPPLY (ONCE A DAY 3 WEEKS ON 1 WEEK OFF)
     Dates: start: 201610

REACTIONS (1)
  - Oral pain [Recovering/Resolving]

NARRATIVE: CASE EVENT DATE: 201610
